FAERS Safety Report 10332369 (Version 3)
Quarter: 2014Q3

REPORT INFORMATION
  Report Type: Spontaneous
  Country: AU (occurrence: AU)
  Receive Date: 20140722
  Receipt Date: 20140903
  Transmission Date: 20150326
  Serious: Yes (Other)
  Sender: FDA-Public Use
  Company Number: AU-BRISTOL-MYERS SQUIBB COMPANY-21192166

PATIENT
  Age: 71 Year
  Sex: Female

DRUGS (3)
  1. DIABEX [Suspect]
     Active Substance: METFORMIN HYDROCHLORIDE
  2. DIAMICRON [Suspect]
     Active Substance: GLICLAZIDE
  3. BYETTA [Suspect]
     Active Substance: EXENATIDE
     Indication: TYPE 2 DIABETES MELLITUS
     Dosage: 2012-UNK DATE(5MCG)?UNK - ONGOING(10MCG/BD)?LAST DOSE ON 08JUL2014
     Dates: start: 2012

REACTIONS (3)
  - Aortic valve replacement [Recovered/Resolved]
  - Pain in extremity [Recovered/Resolved]
  - Hypoaesthesia [Recovered/Resolved]

NARRATIVE: CASE EVENT DATE: 2013
